FAERS Safety Report 7600537-8 (Version None)
Quarter: 2011Q2

REPORT INFORMATION
  Report Type: 
  Country: None (occurrence: None)
  Receive Date: 20110627
  Receipt Date: 20100514
  Transmission Date: 20111010
  Serious: Yes (Death)
  Sender: FDA-Public Use
  Company Number: VISP-PR-1005S-0237

PATIENT
  Age: 66 Year
  Sex: Female

DRUGS (1)
  1. VISIPAQUE [Suspect]
     Indication: ARTERIAL STENOSIS
     Dosage: 80 ML, SINGLE DOSE, INTRAVENOUS
     Route: 042
     Dates: start: 20100414, end: 20100414

REACTIONS (3)
  - ANAPHYLACTOID SHOCK [None]
  - RESPIRATORY ARREST [None]
  - PHARYNGEAL OEDEMA [None]
